FAERS Safety Report 5235057-1 (Version None)
Quarter: 2007Q1

REPORT INFORMATION
  Report Type: 
  Country: None (occurrence: None)
  Receive Date: 20070207
  Receipt Date: 20070124
  Transmission Date: 20070707
  Serious: Yes (Hospitalization)
  Sender: FDA-Public Use
  Company Number: 15585

PATIENT
  Age: 71 Year
  Sex: Male

DRUGS (10)
  1. CYTARABINE [Suspect]
     Indication: ACUTE MYELOID LEUKAEMIA
     Dosage: 20 MG/M2 DAILY SC
     Route: 058
     Dates: start: 20061226
  2. PREDNISONE [Concomitant]
  3. TOPROL-XL [Concomitant]
  4. CLONAZEPAM [Concomitant]
  5. PROCRIT [Concomitant]
  6. FLUOVOXAMINE [Concomitant]
  7. ADVAIR DISKUS 100/50 [Concomitant]
  8. SPIRIVA [Concomitant]
  9. ALBUTEROL/ATROVENT [Concomitant]
  10. .. [Concomitant]

REACTIONS (5)
  - FEBRILE NEUTROPENIA [None]
  - HAEMATOCRIT DECREASED [None]
  - HAEMOGLOBIN DECREASED [None]
  - PLATELET COUNT DECREASED [None]
  - PNEUMONIA [None]
